FAERS Safety Report 5988822-7 (Version None)
Quarter: 2008Q4

REPORT INFORMATION
  Report Type: 
  Country: None (occurrence: None)
  Receive Date: 20081210
  Receipt Date: 20080516
  Transmission Date: 20090506
  Serious: Yes (Other)
  Sender: FDA-Public Use
  Company Number: US-AMGEN-US280246

PATIENT
  Age: 15 Year
  Sex: Female

DRUGS (2)
  1. ENBREL [Suspect]
     Indication: JUVENILE ARTHRITIS
     Route: 058
     Dates: start: 20020717, end: 20060327
  2. METHOTREXATE [Suspect]
     Indication: JUVENILE ARTHRITIS
     Route: 058
     Dates: start: 20011111, end: 20060327

REACTIONS (1)
  - HODGKIN'S DISEASE [None]
